FAERS Safety Report 8867978 (Version 1)
Quarter: 2012Q4

REPORT INFORMATION
  Report Type: 
  Country: US (occurrence: US)
  Receive Date: 20121025
  Receipt Date: 20121025
  Transmission Date: 20130627
  Serious: No
  Sender: FDA-Public Use
  Company Number: US-AMGEN-USASP2012018850

PATIENT
  Age: 39 Year
  Sex: Male
  Weight: 68.03 kg

DRUGS (1)
  1. ENBREL [Suspect]
     Indication: PSORIATIC ARTHROPATHY
     Dosage: 25 mg, 2 times/wk
     Route: 058
     Dates: start: 20060101

REACTIONS (2)
  - Sinusitis [Recovered/Resolved]
  - Bronchitis [Recovered/Resolved]
